FAERS Safety Report 9686170 (Version 2)
Quarter: 2014Q1

REPORT INFORMATION
  Report Type: Spontaneous
  Country: US (occurrence: US)
  Receive Date: 20131113
  Receipt Date: 20140109
  Transmission Date: 20141002
  Serious: No
  Sender: FDA-Public Use
  Company Number: US-PFIZER INC-2013317620

PATIENT
  Age: 68 Year
  Sex: Female

DRUGS (5)
  1. ZITHROMAX [Suspect]
     Indication: COUGH
     Dosage: UNK
  2. ZITHROMAX [Suspect]
     Indication: NASAL CONGESTION
  3. LETAIRIS [Suspect]
     Indication: SCLERODERMA
     Dosage: 5 MG, QD
     Route: 048
     Dates: start: 20110304
  4. LETAIRIS [Suspect]
     Indication: PULMONARY HYPERTENSION
  5. ADCIRCA [Concomitant]
     Dosage: UNK

REACTIONS (5)
  - Drug ineffective [Not Recovered/Not Resolved]
  - Nasal congestion [Not Recovered/Not Resolved]
  - Dyspnoea [Not Recovered/Not Resolved]
  - Asthenia [Not Recovered/Not Resolved]
  - Productive cough [Not Recovered/Not Resolved]
